FAERS Safety Report 4841194-3 (Version None)
Quarter: 2005Q4

REPORT INFORMATION
  Report Type: 
  Country: None (occurrence: None)
  Receive Date: 20051130
  Receipt Date: 20051026
  Transmission Date: 20060501
  Serious: No
  Sender: FDA-Public Use
  Company Number: US-BRISTOL-MYERS SQUIBB COMPANY-13158613

PATIENT
  Sex: Female
  Weight: 79 kg

DRUGS (3)
  1. ABILIFY [Suspect]
     Indication: BIPOLAR DISORDER
     Route: 048
     Dates: start: 20050907, end: 20051021
  2. ASPIRIN [Concomitant]
  3. NIACIN [Concomitant]

REACTIONS (5)
  - ASTHENIA [None]
  - DIFFICULTY IN WALKING [None]
  - HYPERHIDROSIS [None]
  - MUSCULOSKELETAL STIFFNESS [None]
  - SALIVARY HYPERSECRETION [None]
